FAERS Safety Report 6414815-1 (Version None)
Quarter: 2009Q4

REPORT INFORMATION
  Report Type: 
  Country: None (occurrence: None)
  Receive Date: 20091026
  Receipt Date: 20081107
  Transmission Date: 20100525
  Serious: No
  Sender: FDA-Public Use
  Company Number: US-ABBOTT-08P-163-0486879-00

PATIENT
  Sex: Female
  Weight: 104.42 kg

DRUGS (1)
  1. LUPRON DEPOT [Suspect]
     Indication: HAEMORRHAGE
     Route: 030

REACTIONS (1)
  - SINUS HEADACHE [None]
